FAERS Safety Report 8741475 (Version 4)
Quarter: 2013Q2

REPORT INFORMATION
  Report Type: Spontaneous
  Country: US (occurrence: US)
  Receive Date: 20120824
  Receipt Date: 20130506
  Transmission Date: 20140414
  Serious: No
  Sender: FDA-Public Use
  Company Number: US-ASTRAZENECA-2012SE06575

PATIENT
  Age: 66 Year
  Sex: Female

DRUGS (4)
  1. SYMBICORT PMDI [Suspect]
     Indication: CHRONIC OBSTRUCTIVE PULMONARY DISEASE
     Dosage: 160/4.5 MCG DAILY
     Route: 055
  2. NEXIUM [Suspect]
     Route: 048
  3. ALKA SELTZER [Suspect]
     Route: 065
  4. NEBULIZER [Concomitant]

REACTIONS (5)
  - Chronic obstructive pulmonary disease [Unknown]
  - Respiratory disorder [Unknown]
  - Influenza [Unknown]
  - Malaise [Unknown]
  - Drug dose omission [Unknown]
